FAERS Safety Report 5045743-4 (Version None)
Quarter: 2006Q2

REPORT INFORMATION
  Report Type: 
  Country: None (occurrence: None)
  Receive Date: 20060601
  Receipt Date: 20060411
  Transmission Date: 20061013
  Serious: No
  Sender: FDA-Public Use
  Company Number: 2006-BP-04153BP

PATIENT
  Age: 76 Year
  Sex: Male

DRUGS (11)
  1. SPIRIVA [Suspect]
     Indication: CHRONIC OBSTRUCTIVE PULMONARY DISEASE
     Dosage: 18 MCG (18 MCG,1 IN 1 D),IH
     Dates: start: 20040601
  2. SPIRIVA [Suspect]
  3. ADVAIR (SERETIDE /01420901/) [Concomitant]
  4. SYNTHROID [Concomitant]
  5. ZANTAC [Concomitant]
  6. CARDIZEM CD [Concomitant]
  7. LIPITOR [Concomitant]
  8. ZETIA [Concomitant]
  9. ULTRACET (ULTRACET) [Concomitant]
  10. VALIUM [Concomitant]
  11. ASPIRIN [Concomitant]

REACTIONS (1)
  - AGEUSIA [None]
